FAERS Safety Report 17018476 (Version 2)
Quarter: 2019Q4

REPORT INFORMATION
  Report Type: Spontaneous
  Country: KR (occurrence: KR)
  Receive Date: 20191111
  Receipt Date: 20191120
  Transmission Date: 20200122
  Serious: Yes (Hospitalization, Other)
  Sender: FDA-Public Use
  Company Number: KR-BAXTER-2019BAX022229

PATIENT
  Age: 78 Year
  Sex: Male
  Weight: 48 kg

DRUGS (9)
  1. REBAMIPIDE [Concomitant]
     Active Substance: REBAMIPIDE
     Indication: PRODUCT USED FOR UNKNOWN INDICATION
     Route: 048
  2. CLOPIDOGREL [Concomitant]
     Active Substance: CLOPIDOGREL BISULFATE
     Indication: PRODUCT USED FOR UNKNOWN INDICATION
     Route: 048
  3. LEFLOX [Suspect]
     Active Substance: LEVOFLOXACIN
     Dosage: INFUSIONS (ON THE FOURTH DAY OF HOSPITALIZATION, RESTARTED IN CURRENT HOSPITAL (1 DOSE IN 24 HOURS)
     Route: 042
  4. CHOLINE ALFOSCERATE [Concomitant]
     Active Substance: CHOLINE ALFOSCERATE
     Indication: PRODUCT USED FOR UNKNOWN INDICATION
     Route: 048
  5. ERDOSTEINE [Concomitant]
     Active Substance: ERDOSTEINE
     Indication: PRODUCT USED FOR UNKNOWN INDICATION
     Route: 048
  6. NIZATIDINE. [Concomitant]
     Active Substance: NIZATIDINE
     Indication: PRODUCT USED FOR UNKNOWN INDICATION
     Route: 048
  7. LEFLOX [Suspect]
     Active Substance: LEVOFLOXACIN
     Indication: PNEUMONIA
     Dosage: DAILY INFUSIONS (IN PREVIOUS HOSPITAL)
     Route: 042
  8. LEFLOX [Suspect]
     Active Substance: LEVOFLOXACIN
     Dosage: INFUSIONS (ON THE FIFTH DAY OF HOSPITALIZATION, HALF OF PREVIOUS DAY DOSE (1 DOSE IN 24 HOURS)
     Route: 042
  9. LAMOTRIGINE. [Concomitant]
     Active Substance: LAMOTRIGINE
     Indication: SEIZURE
     Route: 065

REACTIONS (8)
  - Delusion [Recovered/Resolved]
  - Insomnia [Recovered/Resolved]
  - Irritability [Recovered/Resolved]
  - Generalised tonic-clonic seizure [Recovered/Resolved]
  - Hallucination, visual [Recovered/Resolved]
  - Confusional state [Recovered/Resolved]
  - Disorientation [Recovered/Resolved]
  - Neurotoxicity [Recovered/Resolved]
